FAERS Safety Report 23518385 (Version 4)
Quarter: 2024Q2

REPORT INFORMATION
  Report Type: Report from Study
  Country: CA (occurrence: CA)
  Receive Date: 20240213
  Receipt Date: 20240530
  Transmission Date: 20240715
  Serious: Yes (Other)
  Sender: FDA-Public Use
  Company Number: CA-BIOGEN-2024BI01249606

PATIENT
  Sex: Male

DRUGS (2)
  1. DALFAMPRIDINE [Suspect]
     Active Substance: DALFAMPRIDINE
     Indication: Multiple sclerosis
     Route: 050
     Dates: start: 20191128
  2. LEVETIRACETAM [Suspect]
     Active Substance: LEVETIRACETAM
     Indication: Seizure
     Route: 050

REACTIONS (6)
  - Seizure [Unknown]
  - Seizure like phenomena [Unknown]
  - Muscle twitching [Unknown]
  - Brain fog [Unknown]
  - Contraindicated product administered [Not Recovered/Not Resolved]
  - Gait disturbance [Unknown]
